FAERS Safety Report 12530026 (Version 1)
Quarter: 2016Q3

REPORT INFORMATION
  Report Type: Spontaneous
  Country: US (occurrence: US)
  Receive Date: 20160706
  Receipt Date: 20160706
  Transmission Date: 20161109
  Serious: Yes (Other)
  Sender: FDA-Public Use
  Company Number: US-AMGEN-USASP2016085537

PATIENT
  Sex: Male

DRUGS (1)
  1. ENBREL [Suspect]
     Active Substance: ETANERCEPT
     Indication: RHEUMATOID ARTHRITIS
     Dosage: 50 MG, QWK
     Route: 065
     Dates: start: 2013, end: 2015

REACTIONS (9)
  - Arthritis [Unknown]
  - Knee arthroplasty [Unknown]
  - Arthropathy [Unknown]
  - Skin ulcer [Unknown]
  - Papule [Unknown]
  - Pain [Unknown]
  - White blood cell count increased [Recovered/Resolved]
  - Skin lesion [Unknown]
  - Wound secretion [Unknown]
